FAERS Safety Report 10508765 (Version 1)
Quarter: 2014Q3

REPORT INFORMATION
  Report Type: Spontaneous
  Country: US (occurrence: None)
  Receive Date: 20140915
  Receipt Date: 20140915
  Transmission Date: 20150326
  Serious: Yes (Hospitalization, Other)
  Sender: FDA-Public Use
  Company Number: 2013-US-002558

PATIENT
  Age: 25 Year
  Sex: Male
  Weight: 99.8 kg

DRUGS (1)
  1. XYREM [Suspect]
     Active Substance: SODIUM OXYBATE
     Indication: NARCOLEPSY
     Route: 048
     Dates: start: 200908, end: 2009

REACTIONS (7)
  - Memory impairment [None]
  - Intentional product misuse [None]
  - Hallucination, visual [None]
  - Hallucination, auditory [None]
  - Drug abuse [None]
  - Euphoric mood [None]
  - Paranoia [None]

NARRATIVE: CASE EVENT DATE: 20131018
